APPROVED DRUG PRODUCT: LIDOCAINE HYDROCHLORIDE PRESERVATIVE FREE
Active Ingredient: LIDOCAINE HYDROCHLORIDE
Strength: 2%
Dosage Form/Route: INJECTABLE;INJECTION
Application: A090665 | Product #001
Applicant: EXTROVIS AG
Approved: Sep 27, 2010 | RLD: No | RS: No | Type: DISCN